FAERS Safety Report 5607895-4 (Version None)
Quarter: 2008Q1

REPORT INFORMATION
  Report Type: 
  Country: None (occurrence: None)
  Receive Date: 20080130
  Receipt Date: 20070626
  Transmission Date: 20080703
  Serious: No
  Sender: FDA-Public Use
  Company Number: US-ASTRAZENECA-2007UW12674

PATIENT
  Age: 13 Year
  Sex: Female
  Weight: 43.2 kg

DRUGS (6)
  1. ACCOLATE [Suspect]
     Indication: ASTHMA
     Route: 048
     Dates: start: 20070514, end: 20070517
  2. ASTELIN [Concomitant]
  3. ZYRTEC [Concomitant]
     Indication: HYPERSENSITIVITY
     Route: 048
     Dates: start: 20050101
  4. QVAR 40 [Concomitant]
     Indication: ASTHMA
     Route: 055
     Dates: start: 20050401
  5. ADVIL LIQUI-GELS [Concomitant]
  6. ALBUTEROL [Concomitant]
     Indication: ASTHMA
     Route: 055
     Dates: start: 20050101

REACTIONS (2)
  - ARTHRALGIA [None]
  - MUSCULOSKELETAL STIFFNESS [None]
